FAERS Safety Report 9495805 (Version 1)
Quarter: 2013Q3

REPORT INFORMATION
  Report Type: Spontaneous
  Country: US (occurrence: US)
  Receive Date: 20130903
  Receipt Date: 20130903
  Transmission Date: 20140515
  Serious: Yes (Hospitalization)
  Sender: FDA-Public Use
  Company Number: US-B.I. PHARMACEUTICALS,INC./RIDGEFIELD-2013-BI-26956BP

PATIENT
  Age: 75 Year
  Sex: Male
  Weight: 110 kg

DRUGS (4)
  1. SPIRIVA [Suspect]
     Indication: CHRONIC OBSTRUCTIVE PULMONARY DISEASE
     Dosage: 18 MCG
     Route: 055
     Dates: start: 2012
  2. LISINOPRIL [Concomitant]
     Indication: HYPERTENSION
     Dosage: 20 MG
     Route: 048
     Dates: start: 2004
  3. GARLIC [Concomitant]
     Indication: HYPERTENSION
     Dosage: 2 ANZ
     Route: 048
     Dates: start: 1973
  4. GLUCOSAMINE + CHONDROITIN [Concomitant]
     Indication: ARTHRALGIA
     Dosage: 1 ANZ
     Route: 048
     Dates: start: 2005

REACTIONS (2)
  - Arthralgia [Recovered/Resolved]
  - Micturition urgency [Not Recovered/Not Resolved]
